FAERS Safety Report 7909835-1 (Version None)
Quarter: 2011Q4

REPORT INFORMATION
  Report Type: 
  Country: None (occurrence: None)
  Receive Date: 20111111
  Receipt Date: 20111102
  Transmission Date: 20120403
  Serious: Yes (Hospitalization, Other)
  Sender: FDA-Public Use
  Company Number: US-MERCK-1108USA01134

PATIENT
  Age: 78 Year
  Sex: Female

DRUGS (3)
  1. FOSAMAX [Suspect]
     Indication: OSTEOPOROSIS
     Route: 048
     Dates: start: 19990101, end: 20080101
  2. COUMADIN [Concomitant]
     Route: 065
     Dates: start: 20080101
  3. ATENOLOL [Concomitant]
     Route: 065
     Dates: start: 20080101

REACTIONS (25)
  - URINARY INCONTINENCE [None]
  - URINARY TRACT INFECTION [None]
  - GLAUCOMA [None]
  - FALL [None]
  - PUBIS FRACTURE [None]
  - CEREBROVASCULAR ACCIDENT [None]
  - MUSCULOSKELETAL DISCOMFORT [None]
  - HYPERTENSION [None]
  - MICTURITION URGENCY [None]
  - LIGAMENT SPRAIN [None]
  - BLOOD CHOLESTEROL INCREASED [None]
  - DEPRESSION [None]
  - DYSLIPIDAEMIA [None]
  - ANXIETY [None]
  - HYPOTHYROIDISM [None]
  - ANAEMIA POSTOPERATIVE [None]
  - TOOTH DISORDER [None]
  - MITRAL VALVE PROLAPSE [None]
  - FEMORAL NECK FRACTURE [None]
  - ANXIETY DISORDER [None]
  - MUSCLE STRAIN [None]
  - IRRITABLE BOWEL SYNDROME [None]
  - CONTUSION [None]
  - UTERINE DISORDER [None]
  - ATRIAL FIBRILLATION [None]
